FAERS Safety Report 7991247-6 (Version None)
Quarter: 2011Q4

REPORT INFORMATION
  Report Type: 
  Country: None (occurrence: None)
  Receive Date: 20111215
  Receipt Date: 20111205
  Transmission Date: 20120403
  Serious: Yes (Other)
  Sender: FDA-Public Use
  Company Number: TUK2011A00217

PATIENT
  Age: 62 Year
  Sex: Male

DRUGS (10)
  1. GLICLAZIDE(GLICLAZIDE) [Concomitant]
  2. METFORMIN HCL [Concomitant]
  3. ALLOPURINOL [Concomitant]
  4. SITAGLIPTIN [Concomitant]
  5. SYBICORT (FORMOTEROL FUMARATE, BUDESONIDE) [Concomitant]
  6. VENTOLIN [Concomitant]
  7. ACTOS [Suspect]
     Indication: DIABETES MELLITUS
     Dosage: (30MG)
     Route: 048
     Dates: start: 20090915, end: 20100407
  8. OMEPRAZOLE [Concomitant]
  9. ROSUVASTATIN [Concomitant]
  10. VARDENAFIL (VARDENAFIL) [Concomitant]

REACTIONS (1)
  - BLADDER CANCER [None]
